FAERS Safety Report 22027537 (Version 1)
Quarter: 2023Q1

REPORT INFORMATION
  Report Type: Spontaneous
  Country: US (occurrence: None)
  Receive Date: 20230220
  Receipt Date: 20230220
  Transmission Date: 20230417
  Serious: Yes (Other)
  Sender: FDA-Public Use
  Company Number: None

PATIENT
  Age: 59 Year
  Sex: Female
  Weight: 78.75 kg

DRUGS (1)
  1. GABAPENTIN [Suspect]
     Active Substance: GABAPENTIN

REACTIONS (14)
  - Ear congestion [None]
  - Tinnitus [None]
  - Deafness [None]
  - Sinus disorder [None]
  - Snoring [None]
  - Sleep disorder [None]
  - Ear pain [None]
  - Ear canal erythema [None]
  - Nervousness [None]
  - Agitation [None]
  - Withdrawal syndrome [None]
  - Dysphonia [None]
  - Nasal congestion [None]
  - Apnoea [None]

NARRATIVE: CASE EVENT DATE: 20221201
